FAERS Safety Report 13550648 (Version 1)
Quarter: 2017Q2

REPORT INFORMATION
  Report Type: Spontaneous
  Country: US (occurrence: US)
  Receive Date: 20170516
  Receipt Date: 20170516
  Transmission Date: 20170830
  Serious: Yes (Hospitalization)
  Sender: FDA-Public Use
  Company Number: None

PATIENT
  Age: 82 Year
  Sex: Female
  Weight: 88.6 kg

DRUGS (12)
  1. NABUMETONE 750MG PO DAILY [Suspect]
     Active Substance: NABUMETONE
     Indication: RESTLESS LEGS SYNDROME
     Dosage: FREQUENCY - NIGHTLY?DATES OF USE - CHRONIC
     Route: 048
  2. APAP [Concomitant]
     Active Substance: ACETAMINOPHEN
  3. K-DUR [Concomitant]
     Active Substance: POTASSIUM CHLORIDE
  4. COREG [Concomitant]
     Active Substance: CARVEDILOL
  5. PACERONE [Concomitant]
     Active Substance: AMIODARONE HYDROCHLORIDE
  6. AVAPRO [Concomitant]
     Active Substance: IRBESARTAN
  7. GABAPENTIN. [Suspect]
     Active Substance: GABAPENTIN
     Indication: OSTEOARTHRITIS
     Dosage: DATES OF USE - CHRONIC
     Route: 048
  8. RELAFEN [Concomitant]
     Active Substance: NABUMETONE
  9. XANAX [Suspect]
     Active Substance: ALPRAZOLAM
     Route: 048
  10. ZANTAC [Concomitant]
     Active Substance: RANITIDINE HYDROCHLORIDE
  11. REQUIP [Suspect]
     Active Substance: ROPINIROLE HYDROCHLORIDE
  12. DEMADEX [Concomitant]
     Active Substance: TORSEMIDE

REACTIONS (4)
  - Hypoxia [None]
  - Therapy cessation [None]
  - Therapy non-responder [None]
  - Encephalopathy [None]

NARRATIVE: CASE EVENT DATE: 20170106
